FAERS Safety Report 8226224-3 (Version None)
Quarter: 2012Q1

REPORT INFORMATION
  Report Type: 
  Country: None (occurrence: None)
  Receive Date: 20120307
  Receipt Date: 20100831
  Transmission Date: 20120608
  Serious: No
  Sender: FDA-Public Use
  Company Number: PHEH2010US03560

PATIENT
  Age: 54 Year
  Sex: Female

DRUGS (1)
  1. AFINITOR [Suspect]
     Dosage: 10 MG,
     Dates: start: 20100701

REACTIONS (4)
  - EYE DISORDER [None]
  - EYE OEDEMA [None]
  - EYE PRURITUS [None]
  - EYE PAIN [None]
